FAERS Safety Report 11476136 (Version 2)
Quarter: 2015Q3

REPORT INFORMATION
  Report Type: Report from Study
  Country: JP (occurrence: JP)
  Receive Date: 20150909
  Receipt Date: 20150929
  Transmission Date: 20151125
  Serious: Yes (Disabling, Other)
  Sender: FDA-Public Use
  Company Number: JP-SHIRE-JP201511107AA

PATIENT
  Age: 75 Year
  Sex: Female

DRUGS (8)
  1. 422 (ANAGRELIDE) [Suspect]
     Active Substance: ANAGRELIDE
     Indication: ESSENTIAL THROMBOCYTHAEMIA
     Dosage: 1MG/DAY, UNKNOWN
     Route: 048
     Dates: start: 20150515
  2. 422 (ANAGRELIDE) [Suspect]
     Active Substance: ANAGRELIDE
     Dosage: 1.5 MG/DAY, UNKNOWN
     Route: 048
     Dates: start: 20150403, end: 20150430
  3. 422 (ANAGRELIDE) [Suspect]
     Active Substance: ANAGRELIDE
     Dosage: 1 MG/DAY, QOD
     Route: 048
     Dates: start: 20150502, end: 20150514
  4. HYDREA [Concomitant]
     Active Substance: HYDROXYUREA
     Dosage: 500 MG/DAY ON DAY1, 2; 1000 MG/DAY ON DAY3, OTHER (QUAQUE 3 DAYS)
     Route: 048
     Dates: start: 20150724
  5. HYDREA [Concomitant]
     Active Substance: HYDROXYUREA
     Dosage: 500 MG, 1X/DAY:QD
     Route: 048
     Dates: start: 20150501, end: 20150723
  6. 422 (ANAGRELIDE) [Suspect]
     Active Substance: ANAGRELIDE
     Dosage: 1.25 MG/DAY, UNKNOWN
     Route: 048
     Dates: start: 20150206, end: 20150402
  7. 422 (ANAGRELIDE) [Suspect]
     Active Substance: ANAGRELIDE
     Dosage: 1.5 MG/DAY, QOD
     Route: 048
     Dates: start: 20150501, end: 20150513
  8. HYDREA [Concomitant]
     Active Substance: HYDROXYUREA
     Indication: ESSENTIAL THROMBOCYTHAEMIA
     Dosage: 500 MG, QOD
     Route: 048
     Dates: start: 20150403, end: 20150430

REACTIONS (2)
  - Nephrogenic anaemia [Not Recovered/Not Resolved]
  - Chronic kidney disease [Not Recovered/Not Resolved]

NARRATIVE: CASE EVENT DATE: 20150710
